FAERS Safety Report 12510590 (Version 3)
Quarter: 2016Q3

REPORT INFORMATION
  Report Type: Spontaneous
  Country: US (occurrence: US)
  Receive Date: 20160629
  Receipt Date: 20160914
  Transmission Date: 20161109
  Serious: Yes (Death, Hospitalization, Other)
  Sender: FDA-Public Use
  Company Number: US-PFIZER INC-2016317545

PATIENT
  Age: 75 Year
  Sex: Male

DRUGS (1)
  1. NEURONTIN [Suspect]
     Active Substance: GABAPENTIN
     Dosage: UNK

REACTIONS (6)
  - Ischaemic cardiomyopathy [Fatal]
  - Chronic kidney disease [Unknown]
  - Hepatic failure [Unknown]
  - Muscle spasms [Unknown]
  - Cardiac failure [Unknown]
  - Hypotension [Unknown]

NARRATIVE: CASE EVENT DATE: 201512
